FAERS Safety Report 14843568 (Version 3)
Quarter: 2018Q4

REPORT INFORMATION
  Report Type: Spontaneous
  Country: NL (occurrence: NL)
  Receive Date: 20180503
  Receipt Date: 20181026
  Transmission Date: 20190204
  Serious: Yes (Death, Other)
  Sender: FDA-Public Use
  Company Number: NL-MYLANLABS-2018M1028340

PATIENT
  Age: 76 Year
  Sex: Male

DRUGS (1)
  1. IMATINIB. [Suspect]
     Active Substance: IMATINIB MESYLATE
     Indication: GASTROINTESTINAL STROMAL TUMOUR
     Dosage: 400 MG, QD
     Route: 065

REACTIONS (5)
  - Malignant neoplasm progression [Fatal]
  - Disease progression [Fatal]
  - Gastrointestinal stromal tumour [Fatal]
  - Drug ineffective [Fatal]
  - Metastases to peritoneum [Fatal]
